FAERS Safety Report 17216734 (Version 3)
Quarter: 2020Q1

REPORT INFORMATION
  Report Type: Spontaneous
  Country: JP (occurrence: JP)
  Receive Date: 20191230
  Receipt Date: 20200217
  Transmission Date: 20200409
  Serious: Yes (Hospitalization, Other)
  Sender: FDA-Public Use
  Company Number: JP-ROCHE-2511031

PATIENT
  Age: 47 Year
  Sex: Female
  Weight: 54 kg

DRUGS (4)
  1. METHOTREXATE. [Concomitant]
     Active Substance: METHOTREXATE
     Route: 048
     Dates: start: 201304, end: 20191129
  2. ACTEMRA [Suspect]
     Active Substance: TOCILIZUMAB
     Route: 058
     Dates: start: 20160603, end: 20191107
  3. CELECOX [Concomitant]
     Active Substance: CELECOXIB
     Route: 048
     Dates: start: 201304, end: 20191129
  4. ACTEMRA [Suspect]
     Active Substance: TOCILIZUMAB
     Indication: RHEUMATOID ARTHRITIS
     Route: 058
     Dates: start: 20160104, end: 20160520

REACTIONS (4)
  - Intentional product misuse [Unknown]
  - Urinary tract infection [Unknown]
  - Intestinal perforation [Recovered/Resolved]
  - Off label use [Unknown]

NARRATIVE: CASE EVENT DATE: 201911
